FAERS Safety Report 8529334 (Version 2)
Quarter: 2013Q4

REPORT INFORMATION
  Report Type: Spontaneous
  Country: FR (occurrence: FR)
  Receive Date: 20120425
  Receipt Date: 20131114
  Transmission Date: 20140711
  Serious: Yes (Hospitalization)
  Sender: FDA-Public Use
  Company Number: PHHY2012FR033319

PATIENT
  Age: 53 Year
  Sex: Male

DRUGS (4)
  1. LAMISIL [Suspect]
     Indication: ONYCHOMYCOSIS
     Dosage: 250 MG, QD
     Dates: start: 20120216, end: 20120309
  2. LAROXYL [Concomitant]
     Dosage: 6 DRP, QD
  3. MIZOLLEN [Concomitant]
     Dosage: 10 MG, QD
  4. LEXOMIL [Concomitant]
     Dosage: 0.5 DF, QD

REACTIONS (8)
  - Drug reaction with eosinophilia and systemic symptoms [Recovering/Resolving]
  - Toxic skin eruption [Not Recovered/Not Resolved]
  - Rash maculo-papular [Unknown]
  - Rash erythematous [Unknown]
  - Skin exfoliation [Unknown]
  - Oedema peripheral [Not Recovered/Not Resolved]
  - Hepatocellular injury [Not Recovered/Not Resolved]
  - Leukocytosis [Not Recovered/Not Resolved]
